FAERS Safety Report 4687502-8 (Version None)
Quarter: 2005Q2

REPORT INFORMATION
  Report Type: 
  Country: None (occurrence: None)
  Receive Date: 20050610
  Receipt Date: 20050530
  Transmission Date: 20051028
  Serious: Yes (Other)
  Sender: FDA-Public Use
  Company Number: FR-JNJFOC-20050500404

PATIENT
  Age: 45 Year
  Sex: Male
  Weight: 66 kg

DRUGS (3)
  1. REMICADE [Suspect]
     Indication: PSORIASIS
     Dosage: 8 INFUSIONS
     Route: 042
  2. NOVATREX [Concomitant]
     Route: 049
  3. CORTANCYL [Concomitant]
     Route: 065

REACTIONS (1)
  - KERATITIS [None]
